FAERS Safety Report 16856579 (Version 2)
Quarter: 2019Q4

REPORT INFORMATION
  Report Type: Report from Study
  Country: NL (occurrence: NL)
  Receive Date: 20190926
  Receipt Date: 20191004
  Transmission Date: 20200122
  Serious: Yes (Hospitalization)
  Sender: FDA-Public Use
  Company Number: NL-IPSEN BIOPHARMACEUTICALS, INC.-2019-17576

PATIENT
  Age: 71 Year
  Sex: Male

DRUGS (1)
  1. SOMATULINE AUTOSOLUTION 120MG [Suspect]
     Active Substance: LANREOTIDE ACETATE
     Indication: NEUROENDOCRINE TUMOUR
     Route: 058
     Dates: start: 20170426

REACTIONS (1)
  - Malaise [Unknown]

NARRATIVE: CASE EVENT DATE: 20190916
